FAERS Safety Report 25328414 (Version 3)
Quarter: 2025Q2

REPORT INFORMATION
  Report Type: Report from Study
  Country: US (occurrence: US)
  Receive Date: 20250518
  Receipt Date: 20250527
  Transmission Date: 20250716
  Serious: Yes (Other)
  Sender: ACADIA PHARMACEUTICALS
  Company Number: US-ACADIA PHARMACEUTICALS INC.-ACA-2025-PIM-005787

PATIENT
  Sex: Female
  Weight: 13.6 kg

DRUGS (8)
  1. NUPLAZID [Suspect]
     Active Substance: PIMAVANSERIN TARTRATE
     Indication: Parkinson^s disease
     Dosage: 34 MILLIGRAM, QOD
     Route: 048
     Dates: start: 2020
  2. NUPLAZID [Suspect]
     Active Substance: PIMAVANSERIN TARTRATE
     Indication: Parkinson^s disease
     Dosage: 10 MILLIGRAM, QD
     Route: 048
  3. SINEMET [Concomitant]
     Active Substance: CARBIDOPA\LEVODOPA
  4. MODAFINIL [Concomitant]
     Active Substance: MODAFINIL
  5. ROPINIROLE [Concomitant]
     Active Substance: ROPINIROLE
  6. RIVASTIGMINE [Concomitant]
     Active Substance: RIVASTIGMINE
  7. AMANTADINE [Concomitant]
     Active Substance: AMANTADINE
  8. AMITRIPTYLINE [Concomitant]
     Active Substance: AMITRIPTYLINE

REACTIONS (10)
  - Dementia [Unknown]
  - Hallucination, visual [Unknown]
  - Speech disorder [Unknown]
  - Condition aggravated [Unknown]
  - Hypersomnia [Unknown]
  - Weight decreased [Unknown]
  - Gait disturbance [Unknown]
  - Fall [Unknown]
  - Drug ineffective [Unknown]
  - Inappropriate schedule of product administration [Unknown]
